FAERS Safety Report 5227274-1 (Version None)
Quarter: 2007Q1

REPORT INFORMATION
  Report Type: 
  Country: None (occurrence: None)
  Receive Date: 20070202
  Receipt Date: 20070122
  Transmission Date: 20070707
  Serious: Yes (Other)
  Sender: FDA-Public Use
  Company Number: 2007AC00135

PATIENT
  Age: 4 Year
  Sex: Female

DRUGS (1)
  1. EMLA [Suspect]
     Indication: PAIN PROPHYLAXIS
     Route: 061

REACTIONS (3)
  - METHAEMOGLOBINAEMIA [None]
  - NERVOUS SYSTEM DISORDER [None]
  - OVERDOSE [None]
